FAERS Safety Report 6905182-5 (Version None)
Quarter: 2010Q3

REPORT INFORMATION
  Report Type: 
  Country: None (occurrence: None)
  Receive Date: 20100804
  Receipt Date: 20100706
  Transmission Date: 20110219
  Serious: No
  Sender: FDA-Public Use
  Company Number: US-PFIZER INC-2008036820

PATIENT
  Sex: Female
  Weight: 136.4 kg

DRUGS (20)
  1. LYRICA [Suspect]
     Indication: FIBROMYALGIA
     Dosage: 75 MG, 2X/DAY
     Dates: start: 20080424
  2. LYRICA [Suspect]
     Dosage: 200 MG, 2X/DAY
     Route: 048
     Dates: start: 20080101
  3. GEODON [Concomitant]
  4. ZOLPIDEM [Concomitant]
     Dosage: 12.5MG AND 6.2MG AT NIGHT
  5. LORAZEPAM [Concomitant]
  6. LAMICTAL [Concomitant]
     Dosage: UNK
  7. CYMBALTA [Concomitant]
     Dosage: UNK
  8. ABILIFY [Concomitant]
     Dosage: 40 MG, AT BED TIME
  9. BYETTA [Concomitant]
     Dosage: UNK
  10. LEVOTHYROXINE [Concomitant]
     Dosage: 0.2 MG, 1X/DAY
  11. TRIMETHOPRIM [Concomitant]
     Dosage: UNK
  12. VISTARIL [Concomitant]
     Dosage: 150 MG, BED TIME
  13. AMARYL [Concomitant]
     Indication: BLOOD GLUCOSE ABNORMAL
     Dosage: 1 MG, 1X/DAY
  14. ZOLOFT [Concomitant]
     Dosage: 200 MG, 1X/DAY
  15. TRIAMCINOLONE [Concomitant]
     Dosage: UNK 2X/DAY AS NEEDED
     Route: 061
  16. PROTONIX [Concomitant]
     Dosage: 40 MG, 1X/DAY
  17. NOVOLOG [Concomitant]
     Dosage: 34 UNITS, 3X/DAY
  18. INSULIN [Concomitant]
     Dosage: 50 UNITS IN MORNING AND 80 UNITS AT BEDTIME
  19. WELLBUTRIN SR [Concomitant]
     Dosage: 100 MG, 1X/DAY
  20. LOVAZA [Concomitant]
     Dosage: 2000 MG, 2X/DAY

REACTIONS (2)
  - DRUG INEFFECTIVE [None]
  - NAUSEA [None]
